FAERS Safety Report 9425899 (Version 3)
Quarter: 2013Q3

REPORT INFORMATION
  Report Type: Spontaneous
  Country: IL (occurrence: IL)
  Receive Date: 20130729
  Receipt Date: 20130902
  Transmission Date: 20140515
  Serious: Yes (Hospitalization)
  Sender: FDA-Public Use
  Company Number: IL-B.I. PHARMACEUTICALS,INC./RIDGEFIELD-2013-AP-00591RI

PATIENT
  Age: 69 Year
  Sex: Female
  Weight: 96.5 kg

DRUGS (5)
  1. PRADAXA [Suspect]
     Indication: ATRIAL FIBRILLATION
     Dosage: 300 MG
     Route: 048
     Dates: start: 20130402, end: 20130508
  2. PROFEX [Concomitant]
     Indication: ATRIAL FIBRILLATION
     Dosage: 3 PER DAY
  3. OXYCONTIN [Concomitant]
     Indication: PAIN
     Dosage: 2 PER DAY
  4. CARDILOC [Concomitant]
     Indication: HYPERTENSION
     Dosage: 1 PER DAY
  5. FUSID [Concomitant]
     Indication: HYPERTENSION
     Dosage: 2PER DAY

REACTIONS (3)
  - Generalised oedema [Unknown]
  - Dyspnoea [Unknown]
  - Urinary retention [Unknown]
